FAERS Safety Report 9646688 (Version 1)
Quarter: 2013Q4

REPORT INFORMATION
  Report Type: Report from Study
  Country: CA (occurrence: CA)
  Receive Date: 20131027
  Receipt Date: 20131027
  Transmission Date: 20140711
  Serious: Yes (Other)
  Sender: FDA-Public Use
  Company Number: PHHY2013CA120904

PATIENT
  Age: 68 Year
  Sex: Female

DRUGS (5)
  1. ACLASTA [Suspect]
     Indication: OSTEOPOROSIS
     Dosage: UNK
     Route: 042
     Dates: start: 20081023
  2. ACLASTA [Suspect]
     Dosage: UNK
     Route: 042
     Dates: start: 20091018
  3. ACLASTA [Suspect]
     Dosage: UNK
     Route: 042
     Dates: start: 20101018
  4. ACLASTA [Suspect]
     Dosage: UNK
     Route: 042
     Dates: start: 20111017
  5. ACLASTA [Suspect]
     Dosage: UNK
     Route: 042
     Dates: start: 20121113

REACTIONS (4)
  - Upper limb fracture [Unknown]
  - Fall [Unknown]
  - Rib fracture [Unknown]
  - Ligament sprain [Unknown]
